FAERS Safety Report 8484147-9 (Version None)
Quarter: 2012Q3

REPORT INFORMATION
  Report Type: 
  Country: None (occurrence: None)
  Receive Date: 20120703
  Receipt Date: 20120627
  Transmission Date: 20120928
  Serious: Yes (Hospitalization)
  Sender: FDA-Public Use
  Company Number: US-COVIDIEN/TYCO HEALTHCARE/MALLINCKRODT-T201202667

PATIENT
  Sex: Male

DRUGS (9)
  1. VICODIN [Concomitant]
  2. ZOCOR [Concomitant]
     Indication: BLOOD CHOLESTEROL
     Dosage: UNK
  3. FENTANYL-100 [Suspect]
     Dosage: 25 UG/HR, Q 72 HOURS
     Dates: start: 20120620, end: 20120625
  4. FENTANYL CITRATE [Suspect]
     Indication: PAIN
     Dosage: 12.5 UG/HR, Q 72 HOURS
     Route: 062
     Dates: start: 20120607, end: 20120614
  5. FENTANYL CITRATE [Suspect]
     Dosage: 12.5 UG/HR, Q 72 HOURS
     Dates: start: 20120620, end: 20120625
  6. SPIRIVA [Concomitant]
     Dosage: UNK
  7. FENTANYL-100 [Suspect]
     Indication: PAIN
     Dosage: 25 UG/HR, Q 72 HOURS
     Dates: start: 20120607, end: 20120614
  8. MIRAPEX [Concomitant]
     Indication: CONSTIPATION
     Dosage: UNK
  9. FLOMAX [Concomitant]
     Dosage: UNK

REACTIONS (12)
  - CONFUSIONAL STATE [None]
  - CONSTIPATION [None]
  - CHEST PAIN [None]
  - SPEECH DISORDER [None]
  - DRY MOUTH [None]
  - DECREASED APPETITE [None]
  - MYALGIA [None]
  - GAIT DISTURBANCE [None]
  - PRURITUS [None]
  - APPLICATION SITE DISCOMFORT [None]
  - MUSCULAR WEAKNESS [None]
  - AMNESIA [None]
